FAERS Safety Report 12984756 (Version 1)
Quarter: 2016Q4

REPORT INFORMATION
  Report Type: Spontaneous
  Country: SE (occurrence: SE)
  Receive Date: 20161129
  Receipt Date: 20161129
  Transmission Date: 20170207
  Serious: Yes (Other)
  Sender: FDA-Public Use
  Company Number: SE-TEVA-712683ACC

PATIENT
  Age: 45 Year
  Sex: Female

DRUGS (1)
  1. GABAPENTIN TEVA 300 MG [Suspect]
     Active Substance: GABAPENTIN
     Indication: POST HERPETIC NEURALGIA
     Dosage: 1800 MILLIGRAM DAILY;
     Route: 048
     Dates: start: 20160831, end: 20161018

REACTIONS (1)
  - Blister [Recovered/Resolved]

NARRATIVE: CASE EVENT DATE: 20161001
